FAERS Safety Report 5416647-X (Version None)
Quarter: 2007Q3

REPORT INFORMATION
  Report Type: 
  Country: None (occurrence: None)
  Receive Date: 20070814
  Receipt Date: 20070802
  Transmission Date: 20080115
  Serious: Yes (Hospitalization, Other)
  Sender: FDA-Public Use
  Company Number: 235871K06USA

PATIENT
  Age: 56 Year
  Sex: Male

DRUGS (8)
  1. REBIF [Suspect]
     Indication: MULTIPLE SCLEROSIS
     Dosage: SEE IMAGE
     Route: 042
     Dates: start: 20030413, end: 20060801
  2. REBIF [Suspect]
     Indication: MULTIPLE SCLEROSIS
     Dosage: SEE IMAGE
     Route: 042
     Dates: start: 20060901, end: 20060901
  3. REBIF [Suspect]
     Indication: MULTIPLE SCLEROSIS
     Dosage: SEE IMAGE
     Route: 042
     Dates: start: 20060901
  4. PREVACID [Concomitant]
  5. DURAGESIC-100 [Concomitant]
  6. GABAPENTIN [Concomitant]
  7. PROVIGIL [Concomitant]
  8. BACLOFEN [Concomitant]

REACTIONS (8)
  - DEHYDRATION [None]
  - DIABETES MELLITUS [None]
  - GASTROENTERITIS VIRAL [None]
  - HYPERTENSION [None]
  - HYPOAESTHESIA [None]
  - MUSCLE SPASMS [None]
  - PAIN IN EXTREMITY [None]
  - VOMITING [None]
